FAERS Safety Report 7626240-6 (Version None)
Quarter: 2011Q3

REPORT INFORMATION
  Report Type: 
  Country: None (occurrence: None)
  Receive Date: 20110721
  Receipt Date: 20110712
  Transmission Date: 20111222
  Serious: Yes (Disabling, Other)
  Sender: FDA-Public Use
  Company Number: PHEH2009US16959

PATIENT
  Sex: Female

DRUGS (9)
  1. VITAMIN B-12 [Concomitant]
  2. AVASTIN [Concomitant]
  3. FOSAMAX [Suspect]
  4. NEULASTA [Concomitant]
  5. DECADRON [Concomitant]
  6. CARBOPLATIN [Suspect]
  7. ALIMTA [Concomitant]
  8. ALOXI [Concomitant]
  9. ZOMETA [Suspect]

REACTIONS (20)
  - ANHEDONIA [None]
  - FATIGUE [None]
  - RED BLOOD CELL COUNT DECREASED [None]
  - ANXIETY [None]
  - ARTHRALGIA [None]
  - NAUSEA [None]
  - SERUM FERRITIN INCREASED [None]
  - PAIN [None]
  - DRUG HYPERSENSITIVITY [None]
  - BLOOD PRESSURE DECREASED [None]
  - HAEMOGLOBIN DECREASED [None]
  - DIZZINESS [None]
  - VITAMIN B12 INCREASED [None]
  - OSTEONECROSIS OF JAW [None]
  - INJURY [None]
  - METASTASES TO LUNG [None]
  - ANAEMIA [None]
  - BLOOD ERYTHROPOIETIN INCREASED [None]
  - VOMITING [None]
  - WHITE BLOOD CELL COUNT DECREASED [None]
